FAERS Safety Report 16509703 (Version 1)
Quarter: 2019Q3

REPORT INFORMATION
  Report Type: Spontaneous
  Country: US (occurrence: US)
  Receive Date: 20190701
  Receipt Date: 20190701
  Transmission Date: 20191004
  Serious: Yes (Hospitalization)
  Sender: FDA-Public Use
  Company Number: None

PATIENT
  Age: 71 Year
  Sex: Male

DRUGS (2)
  1. TAFINLAR [Suspect]
     Active Substance: DABRAFENIB MESYLATE
     Indication: BRAIN NEOPLASM MALIGNANT
     Route: 048
  2. MEKINIST [Suspect]
     Active Substance: TRAMETINIB DIMETHYL SULFOXIDE
     Indication: BRAIN NEOPLASM MALIGNANT
     Route: 048

REACTIONS (2)
  - Cardiovascular disorder [None]
  - Blood pressure systolic increased [None]

NARRATIVE: CASE EVENT DATE: 20190627
